FAERS Safety Report 13849217 (Version 1)
Quarter: 2017Q3

REPORT INFORMATION
  Report Type: Spontaneous
  Country: US (occurrence: US)
  Receive Date: 20170809
  Receipt Date: 20170809
  Transmission Date: 20171127
  Serious: Yes (Hospitalization, Disabling)
  Sender: FDA-Public Use
  Company Number: None

PATIENT
  Age: 46 Year
  Sex: Female
  Weight: 58.5 kg

DRUGS (10)
  1. CENTRUM MULTI VITAMIN [Concomitant]
  2. REGLAN [Concomitant]
     Active Substance: METOCLOPRAMIDE HYDROCHLORIDE
  3. TRAMADOL. [Concomitant]
     Active Substance: TRAMADOL
  4. TURMERIC [Concomitant]
     Active Substance: HERBALS\TURMERIC
  5. ACTEMRA [Concomitant]
     Active Substance: TOCILIZUMAB
  6. SULFASAZALINE [Concomitant]
  7. LUPRON [Suspect]
     Active Substance: LEUPROLIDE ACETATE
     Indication: ENDOMETRIOSIS
     Dosage: ?          OTHER FREQUENCY:ONCE A MONTH;?
     Route: 058
     Dates: start: 20081015, end: 20081215
  8. SLIPPERY ELM [Concomitant]
     Active Substance: ELM
  9. AMBIEN [Concomitant]
     Active Substance: ZOLPIDEM TARTRATE
  10. BIOTIN [Concomitant]
     Active Substance: BIOTIN

REACTIONS (6)
  - Pain [None]
  - Abdominal pain [None]
  - Cholecystectomy [None]
  - Systemic lupus erythematosus [None]
  - Hot flush [None]
  - Rheumatoid arthritis [None]

NARRATIVE: CASE EVENT DATE: 20081015
